FAERS Safety Report 14841932 (Version 1)
Quarter: 2018Q2

REPORT INFORMATION
  Report Type: Spontaneous
  Country: US (occurrence: US)
  Receive Date: 20180503
  Receipt Date: 20180503
  Transmission Date: 20180711
  Serious: No
  Sender: FDA-Public Use
  Company Number: US-CELGENEUS-USA-20180409856

PATIENT
  Sex: Female

DRUGS (1)
  1. OTEZLA [Suspect]
     Active Substance: APREMILAST
     Indication: PSORIASIS
     Dosage: 60 MILLIGRAM
     Route: 048
     Dates: start: 20180130

REACTIONS (6)
  - Unevaluable event [Unknown]
  - Frequent bowel movements [Unknown]
  - Gastrointestinal disorder [Unknown]
  - Headache [Unknown]
  - Faeces discoloured [Unknown]
  - Nausea [Unknown]

NARRATIVE: CASE EVENT DATE: 2018
